FAERS Safety Report 22028174 (Version 1)
Quarter: 2023Q1

REPORT INFORMATION
  Report Type: Spontaneous
  Country: US (occurrence: None)
  Receive Date: 20230216
  Receipt Date: 20230216
  Transmission Date: 20230418
  Serious: Yes (Death)
  Sender: FDA-Public Use
  Company Number: None

PATIENT
  Age: 80 Year
  Sex: Female

DRUGS (4)
  1. SKYRIZI [Suspect]
     Active Substance: RISANKIZUMAB-RZAA
     Indication: Eczema
     Dosage: 150MG Q 12 WEEKS SQ
     Route: 058
     Dates: start: 20220907, end: 20230216
  2. SKYRIZI [Suspect]
     Active Substance: RISANKIZUMAB-RZAA
     Indication: Psoriasis
  3. ALLOPURINOL [Concomitant]
     Active Substance: ALLOPURINOL
  4. ASPIRIN  EC LOW DOSE [Concomitant]

REACTIONS (1)
  - Multimorbidity [None]

NARRATIVE: CASE EVENT DATE: 20230216
